FAERS Safety Report 9203453 (Version 1)
Quarter: 2013Q2

REPORT INFORMATION
  Report Type: Spontaneous
  Country: US (occurrence: US)
  Receive Date: 20130402
  Receipt Date: 20130402
  Transmission Date: 20140414
  Serious: No
  Sender: FDA-Public Use
  Company Number: US-BAYER-2013-038999

PATIENT
  Age: 62 Year
  Sex: Female
  Weight: 61.22 kg

DRUGS (4)
  1. BETASERON [Suspect]
     Dosage: 0.25 MG, QOD
     Route: 058
  2. AMPYRA [Concomitant]
     Dosage: 10 MG, UNK
     Route: 048
  3. EVISTA [RALOXIFENE HYDROCHLORIDE] [Concomitant]
     Dosage: 60 MG, UNK
     Route: 048
  4. CIPROFLOXACIN [Concomitant]
     Dosage: 1000 MG, UNK
     Route: 048

REACTIONS (2)
  - Injection site pain [Unknown]
  - Injection site bruising [Unknown]
